FAERS Safety Report 8505010-0 (Version None)
Quarter: 2012Q3

REPORT INFORMATION
  Report Type: 
  Country: None (occurrence: None)
  Receive Date: 20120712
  Receipt Date: 20120702
  Transmission Date: 20120928
  Serious: Yes (Hospitalization)
  Sender: FDA-Public Use
  Company Number: US-FRI-1000030811

PATIENT
  Age: 26 Year
  Sex: Female
  Weight: 68 kg

DRUGS (3)
  1. VIIBRYD [Suspect]
     Dosage: 40 MG
     Dates: end: 20111126
  2. VIIBRYD [Suspect]
     Indication: DEPRESSION
     Dosage: 20 MG
     Dates: start: 20111004
  3. VIIBRYD [Suspect]

REACTIONS (6)
  - INSOMNIA [None]
  - PARANOIA [None]
  - JUDGEMENT IMPAIRED [None]
  - ANXIETY [None]
  - PSYCHOTIC DISORDER [None]
  - STRESS [None]
